FAERS Safety Report 9149607 (Version 1)
Quarter: 2013Q1

REPORT INFORMATION
  Report Type: Report from Study
  Country: JP (occurrence: JP)
  Receive Date: 20130308
  Receipt Date: 20130308
  Transmission Date: 20140127
  Serious: Yes (Hospitalization)
  Sender: FDA-Public Use
  Company Number: JP-SANOFI-AVENTIS-2013SA020963

PATIENT
  Age: 62 Year
  Sex: Female
  Weight: 41.7 kg

DRUGS (9)
  1. CLOPIDOGREL BISULFATE [Suspect]
     Indication: MYOCARDIAL ISCHAEMIA
     Route: 065
     Dates: start: 20111214, end: 20120821
  2. BAYASPIRIN [Concomitant]
  3. TAKEPRON [Concomitant]
  4. NICORANDIL [Concomitant]
  5. LIPITOR [Concomitant]
  6. RENIVACE [Concomitant]
     Dates: end: 20120502
  7. LANTUS [Concomitant]
  8. APIDRA [Concomitant]
  9. MAINTATE [Concomitant]

REACTIONS (1)
  - Cardiac failure [Recovered/Resolved]
